FAERS Safety Report 11274679 (Version 1)
Quarter: 2015Q3

REPORT INFORMATION
  Report Type: Report from Study
  Country: GB (occurrence: GB)
  Receive Date: 20150715
  Receipt Date: 20150715
  Transmission Date: 20151125
  Serious: Yes (Hospitalization)
  Sender: FDA-Public Use
  Company Number: GB-ABBVIE-15K-167-1424880-00

PATIENT
  Age: 65 Year
  Sex: Male
  Weight: 70 kg

DRUGS (1)
  1. HUMIRA [Suspect]
     Active Substance: ADALIMUMAB
     Indication: RHEUMATOID ARTHRITIS
     Route: 058
     Dates: start: 20090122, end: 20150113

REACTIONS (4)
  - Testicular swelling [Unknown]
  - Haematuria [Unknown]
  - Dysuria [Unknown]
  - Erythema [Unknown]

NARRATIVE: CASE EVENT DATE: 20141216
